FAERS Safety Report 24760799 (Version 1)
Quarter: 2024Q4

REPORT INFORMATION
  Report Type: Spontaneous
  Country: CN (occurrence: CN)
  Receive Date: 20241220
  Receipt Date: 20241220
  Transmission Date: 20250114
  Serious: Yes (Other)
  Sender: ELI LILLY AND COMPANY
  Company Number: CN-Merck Healthcare KGaA-2024066274

PATIENT
  Age: 71 Year
  Sex: Female
  Weight: 53 kg

DRUGS (5)
  1. ERBITUX [Suspect]
     Active Substance: CETUXIMAB
     Indication: Gingival cancer
     Dosage: 300 MG, UNKNOWN
     Route: 042
     Dates: start: 20241130
  2. PACLITAXEL [Suspect]
     Active Substance: PACLITAXEL
     Indication: Gingival cancer
     Dosage: 90 MG, DAILY
     Route: 041
     Dates: start: 20241129, end: 20241129
  3. PACLITAXEL [Suspect]
     Active Substance: PACLITAXEL
     Dosage: 60 MG, DAILY
     Route: 041
     Dates: start: 20241204, end: 20241204
  4. CISPLATIN [Suspect]
     Active Substance: CISPLATIN
     Indication: Gingival cancer
     Dosage: 30 MG, DAILY
     Route: 041
     Dates: start: 20241201, end: 20241201
  5. SODIUM CHLORIDE [Concomitant]
     Active Substance: SODIUM CHLORIDE
     Indication: Medication dilution
     Dosage: 250 ML, DAILY
     Route: 041
     Dates: start: 20241129, end: 20241204

REACTIONS (1)
  - Myelosuppression [Recovering/Resolving]

NARRATIVE: CASE EVENT DATE: 20241203
